FAERS Safety Report 6673866-2 (Version None)
Quarter: 2010Q2

REPORT INFORMATION
  Report Type: 
  Country: None (occurrence: None)
  Receive Date: 20100409
  Receipt Date: 20100401
  Transmission Date: 20101027
  Serious: Yes (Hospitalization, Other)
  Sender: FDA-Public Use
  Company Number: US-BIOGENIDEC-2009BI023443

PATIENT
  Age: 64 Year
  Sex: Female
  Weight: 86 kg

DRUGS (9)
  1. TYSABRI [Suspect]
     Indication: MULTIPLE SCLEROSIS
     Route: 042
     Dates: start: 20080616
  2. CALCIUM [Concomitant]
     Route: 048
  3. VITAMIN D [Concomitant]
  4. VITAMIN B-12 [Concomitant]
  5. DIOVAN [Concomitant]
     Route: 048
  6. NEXIUM [Concomitant]
     Route: 048
  7. PRAVASTATIN [Concomitant]
     Route: 048
  8. SYNTHROID [Concomitant]
     Route: 048
  9. ZOLOFT [Concomitant]
     Route: 048

REACTIONS (1)
  - BREAST CANCER STAGE I [None]
